FAERS Safety Report 9462133 (Version 1)
Quarter: 2013Q3

REPORT INFORMATION
  Report Type: Spontaneous
  Country: US (occurrence: None)
  Receive Date: 20130815
  Receipt Date: 20130815
  Transmission Date: 20140515
  Serious: Yes (Hospitalization)
  Sender: FDA-Public Use
  Company Number: None

PATIENT
  Sex: Female
  Weight: 88.8 kg

DRUGS (7)
  1. ABILIFY [Suspect]
     Indication: DEPRESSION
     Route: 048
  2. PROZAC [Suspect]
     Indication: DEPRESSION
     Route: 048
  3. XANAX XR [Suspect]
  4. HALCION [Suspect]
  5. DEXILANT [Concomitant]
  6. PROGESTERONE [Concomitant]
  7. ESTRADIOL [Concomitant]

REACTIONS (3)
  - Depression [None]
  - Anxiety [None]
  - Unevaluable event [None]
